FAERS Safety Report 26186113 (Version 1)
Quarter: 2025Q4

REPORT INFORMATION
  Report Type: Spontaneous
  Country: EU (occurrence: EU)
  Receive Date: 20251222
  Receipt Date: 20251222
  Transmission Date: 20260118
  Serious: Yes (Life-Threatening, Hospitalization)
  Sender: TEVA
  Company Number: None

PATIENT
  Age: 76 Year
  Sex: Female
  Weight: 72 kg

DRUGS (8)
  1. HYDROCHLOROTHIAZIDE [Suspect]
     Active Substance: HYDROCHLOROTHIAZIDE
     Indication: Hypertension
     Dosage: 1D1 PIECE, BRAND NAME NOT SPECIFIED
     Route: 048
     Dates: start: 20150101, end: 20250919
  2. SPIRONOLACTONE [Concomitant]
     Active Substance: SPIRONOLACTONE
     Indication: Product used for unknown indication
     Dosage: UNCLEAR HOW MUCH, BRAND NAME NOT SPECIFIED
     Route: 048
  3. METOPROLOL [Concomitant]
     Active Substance: METOPROLOL
     Indication: Product used for unknown indication
     Dosage: (SUCCINATE) / BRAND NAME NOT SPECIFIED
     Route: 048
  4. BARNIDIPINE [Concomitant]
     Active Substance: BARNIDIPINE
     Indication: Product used for unknown indication
     Dosage: UNCLEAR HOW MUCH, MGA / BRAND NAME NOT SPECIFIED
     Route: 048
  5. SIMVASTATIN [Concomitant]
     Active Substance: SIMVASTATIN
     Indication: Product used for unknown indication
     Dosage: FO/ BRAND NAME NOT SPECIFIED
     Route: 048
  6. DICLOFENAC [Suspect]
     Active Substance: DICLOFENAC
     Indication: Arthralgia
     Dosage: 2X PER DAY 1, VOLTAREN EMULGEL
     Route: 003
     Dates: start: 20250901, end: 20250916
  7. METFORMIN [Concomitant]
     Active Substance: METFORMIN HYDROCHLORIDE
     Indication: Product used for unknown indication
     Dosage: MGA / BRAND NAME NOT SPECIFIED
     Route: 048
  8. OLMESARTAN [Concomitant]
     Active Substance: OLMESARTAN
     Indication: Product used for unknown indication
     Dosage: FO / BRAND NAME NOT SPECIFIED
     Route: 048

REACTIONS (2)
  - Acute kidney injury [Recovering/Resolving]
  - Tubulointerstitial nephritis [Recovering/Resolving]
